FAERS Safety Report 4823386-2 (Version None)
Quarter: 2005Q4

REPORT INFORMATION
  Report Type: 
  Country: None (occurrence: None)
  Receive Date: 20051107
  Receipt Date: 20051025
  Transmission Date: 20060501
  Serious: Yes (Other)
  Sender: FDA-Public Use
  Company Number: 2005BH002472

PATIENT
  Age: 81 Year
  Sex: Female

DRUGS (1)
  1. DIPYRIDAMOLE [Suspect]

REACTIONS (2)
  - CARDIOGENIC SHOCK [None]
  - TRANSIENT ISCHAEMIC ATTACK [None]
